FAERS Safety Report 11092510 (Version 1)
Quarter: 2015Q2

REPORT INFORMATION
  Report Type: Report from Study
  Country: CN (occurrence: CN)
  Receive Date: 20150506
  Receipt Date: 20150506
  Transmission Date: 20150821
  Serious: Yes (Death)
  Sender: FDA-Public Use
  Company Number: CN-ACCORD-030563

PATIENT
  Age: 5 Year
  Sex: Female

DRUGS (6)
  1. CICLOSPORIN [Suspect]
     Active Substance: CYCLOSPORINE
     Indication: IMMUNOSUPPRESSION
     Dosage: 1.25 MG/KG-9 D BEFORE TRANSPLANTATION,EVERY 12H?2-4MG/KG-TO ORAL
     Route: 042
  2. FLUDARABINE/FLUDARABINE PHOSPHATE [Concomitant]
     Dosage: BEFORE TRANSPLANTATION
     Route: 042
  3. METHOTREXATE/METHOTREXATE SODIUM [Suspect]
     Active Substance: METHOTREXATE\METHOTREXATE SODIUM
     Indication: IMMUNOSUPPRESSION
     Dosage: 15 MG/M2-1 D AFTER TRANSPLANTING,?10 MG/M2-3, 6, 11 D AFTER TRANSPLANTATION
     Route: 042
  4. ATG [Concomitant]
     Active Substance: LAPINE T-LYMPHOCYTE IMMUNE GLOBULIN
     Dosage: 20 H, 4-1 D BEFORE TRANSPLANTATION
     Route: 042
  5. MYCOPHENOLIC ACID. [Suspect]
     Active Substance: MYCOPHENOLIC ACID
     Indication: IMMUNOSUPPRESSION
  6. CYCLOPHOSPHAMIDE/CYCLOPHOSPHAMIDE MONOHYDRATE [Concomitant]
     Dosage: 5-2 D BEFORE TRANSPLANTATION
     Route: 042

REACTIONS (3)
  - Graft versus host disease [Fatal]
  - Gastrointestinal haemorrhage [Fatal]
  - Graft versus host disease in gastrointestinal tract [None]
